FAERS Safety Report 9605056 (Version 2)
Quarter: 2013Q4

REPORT INFORMATION
  Report Type: Spontaneous
  Country: PK (occurrence: PK)
  Receive Date: 20131008
  Receipt Date: 20131022
  Transmission Date: 20140711
  Serious: Yes (Death)
  Sender: FDA-Public Use
  Company Number: PK-PFIZER INC-2013285653

PATIENT
  Sex: 0

DRUGS (2)
  1. SUTENT [Suspect]
  2. GABAPENTIN [Concomitant]
     Indication: PAIN

REACTIONS (3)
  - Death [Fatal]
  - Haemoglobin decreased [Unknown]
  - Platelet count decreased [Unknown]
